FAERS Safety Report 4801900-0 (Version None)
Quarter: 2005Q4

REPORT INFORMATION
  Report Type: 
  Country: None (occurrence: None)
  Receive Date: 20051014
  Receipt Date: 20051014
  Transmission Date: 20060501
  Serious: Yes (Hospitalization)
  Sender: FDA-Public Use
  Company Number: None

PATIENT
  Sex: Female
  Weight: 56.6996 kg

DRUGS (1)
  1. ZELNORM [Suspect]
     Indication: IRRITABLE BOWEL SYNDROME
     Dosage: 2MG 1 PO
     Route: 048
     Dates: start: 20040105, end: 20050929

REACTIONS (2)
  - ABDOMINAL ADHESIONS [None]
  - DIARRHOEA HAEMORRHAGIC [None]
